FAERS Safety Report 16047372 (Version 2)
Quarter: 2019Q1

REPORT INFORMATION
  Report Type: Report from Study
  Country: US (occurrence: US)
  Receive Date: 20190307
  Receipt Date: 20190315
  Transmission Date: 20190418
  Serious: Yes (Hospitalization, Other)
  Sender: FDA-Public Use
  Company Number: US-BRISTOL-MYERS SQUIBB COMPANY-BMS-2019-023420

PATIENT
  Age: 61 Year
  Sex: Female
  Weight: 65 kg

DRUGS (2)
  1. IPILIMUMAB [Suspect]
     Active Substance: IPILIMUMAB
     Indication: GENITOURINARY TRACT NEOPLASM
     Dosage: 1 MG/KG, UNK
     Route: 042
     Dates: start: 20190208
  2. NIVOLUMAB [Suspect]
     Active Substance: NIVOLUMAB
     Indication: GENITOURINARY TRACT NEOPLASM
     Dosage: 3 MG/KG, UNK
     Route: 042
     Dates: start: 20190208

REACTIONS (1)
  - Hypokalaemia [Unknown]

NARRATIVE: CASE EVENT DATE: 20190301
